FAERS Safety Report 4852101-1 (Version None)
Quarter: 2005Q4

REPORT INFORMATION
  Report Type: 
  Country: None (occurrence: None)
  Receive Date: 20051212
  Receipt Date: 20051212
  Transmission Date: 20060501
  Serious: Yes (Life-Threatening)
  Sender: FDA-Public Use
  Company Number: None

PATIENT
  Sex: Female
  Weight: 52 kg

DRUGS (6)
  1. ZELNORM [Suspect]
     Indication: CONSTIPATION
     Dosage: 6 MG BID PO
     Route: 048
  2. NORVASCM- AMLODIPINE [Concomitant]
  3. PREMARIN [Concomitant]
  4. CENTRUM SILVER MULTIVITAMIN [Concomitant]
  5. VITAMIN E [Concomitant]
  6. UNCERTAIN STOOL SOFTNER [Concomitant]

REACTIONS (2)
  - ATRIAL FIBRILLATION [None]
  - PULMONARY OEDEMA [None]
